FAERS Safety Report 13413176 (Version 2)
Quarter: 2017Q2

REPORT INFORMATION
  Report Type: Report from Study
  Country: US (occurrence: US)
  Receive Date: 20170407
  Receipt Date: 20170505
  Transmission Date: 20170830
  Serious: Yes (Hospitalization, Disabling, Other)
  Sender: FDA-Public Use
  Company Number: US-009507513-1704USA002478

PATIENT
  Age: 65 Year
  Sex: Female
  Weight: 59.1 kg

DRUGS (18)
  1. NAVELBINE [Suspect]
     Active Substance: VINORELBINE TARTRATE
     Dosage: 25 MG/M2, ON DAYS 1 AND 8 OF EVERY 21 DAY CYCLE
     Route: 042
     Dates: start: 20160526, end: 20160526
  2. NAVELBINE [Suspect]
     Active Substance: VINORELBINE TARTRATE
     Dosage: 25 MG/M2, ON DAYS 1 AND 8 OF EVERY 21 DAY CYCLE
     Route: 042
     Dates: start: 20160707, end: 20160707
  3. FERROUS SULFATE. [Concomitant]
     Active Substance: FERROUS SULFATE
     Indication: MINERAL SUPPLEMENTATION
     Dosage: 325 MG, TID
     Route: 048
     Dates: start: 20160629
  4. COMPAZINE [Concomitant]
     Active Substance: PROCHLORPERAZINE MALEATE
     Indication: NAUSEA
     Dosage: 10 MG, Q6H PRN
     Route: 048
     Dates: start: 20151007
  5. CRANBERRY. [Concomitant]
     Active Substance: CRANBERRY
     Indication: ROUTINE HEALTH MAINTENANCE
     Dosage: 400MG
     Dates: start: 20160629
  6. NAVELBINE [Suspect]
     Active Substance: VINORELBINE TARTRATE
     Dosage: 25 MG/M2, ON DAYS 1 AND 8 OF EVERY 21 DAY CYCLE
     Route: 042
     Dates: start: 20160714, end: 20160714
  7. PREMARIN [Concomitant]
     Active Substance: ESTROGENS, CONJUGATED
     Indication: VULVOVAGINAL DRYNESS
     Dosage: 0.5 GM, 2 X WEEKLY (0.625 MG/1GM)
     Route: 067
     Dates: start: 20160630
  8. ATIVAN [Concomitant]
     Active Substance: LORAZEPAM
     Indication: ANXIETY
     Dosage: 0.5MG-1MG, TID PRN
     Route: 048
     Dates: start: 20150918
  9. LEXAPRO [Concomitant]
     Active Substance: ESCITALOPRAM OXALATE
     Indication: MOOD ALTERED
     Dosage: 10 MG, DAILY
     Dates: start: 20151118
  10. TRAMETINIB [Suspect]
     Active Substance: TRAMETINIB
     Indication: NEOPLASM MALIGNANT
     Dosage: 2 MG, EVEY OTHER DAY
     Route: 048
     Dates: start: 20160519, end: 20160719
  11. NAVELBINE [Suspect]
     Active Substance: VINORELBINE TARTRATE
     Dosage: 25 MG/M2, ON DAYS 1 AND 8 OF EVERY 21 DAY CYCLE
     Route: 042
     Dates: start: 20160609, end: 20160609
  12. ALLEGRA ALLERGY [Concomitant]
     Active Substance: FEXOFENADINE HYDROCHLORIDE
     Indication: HYPERSENSITIVITY
     Dosage: 180 MG, DAILY PRN
     Route: 048
  13. NAVELBINE [Suspect]
     Active Substance: VINORELBINE TARTRATE
     Indication: NEOPLASM MALIGNANT
     Dosage: 25 MG/M2, ON DAYS 1 AND 8 OF EVERY 21 DAY CYCLE
     Route: 042
     Dates: start: 20160519, end: 20160519
  14. MIRALAX [Concomitant]
     Active Substance: POLYETHYLENE GLYCOL 3350
     Indication: CONSTIPATION
     Dosage: 17 MG, TID, PRN (17 GM POWDER)
     Route: 048
  15. KEYTRUDA [Suspect]
     Active Substance: PEMBROLIZUMAB
     Indication: BREAST CANCER STAGE IV
     Dosage: 2 MG/KG, EVERY 21 DAYS
     Route: 042
     Dates: start: 20160609, end: 20160707
  16. KEYTRUDA [Suspect]
     Active Substance: PEMBROLIZUMAB
     Dosage: 2 MG/KG, EVERY 21 DAYS
     Route: 042
     Dates: start: 20160929
  17. NAVELBINE [Suspect]
     Active Substance: VINORELBINE TARTRATE
     Dosage: 25 MG/M2, ON DAYS 1 AND 8 OF EVERY 21 DAY CYCLE
     Route: 042
     Dates: start: 20160616, end: 20160616
  18. ZOLPIDEM [Concomitant]
     Active Substance: ZOLPIDEM\ZOLPIDEM TARTRATE
     Indication: SLEEP DISORDER
     Dosage: 12.5 MG, BEDTIME
     Route: 048
     Dates: start: 20151021

REACTIONS (5)
  - Neutropenia [Unknown]
  - Lactic acidosis [Unknown]
  - Septic shock [Recovered/Resolved]
  - Anaemia [Unknown]
  - Clostridium difficile colitis [Unknown]

NARRATIVE: CASE EVENT DATE: 201607
